FAERS Safety Report 5665211-6 (Version None)
Quarter: 2008Q1

REPORT INFORMATION
  Report Type: 
  Country: None (occurrence: None)
  Receive Date: 20080314
  Receipt Date: 20080116
  Transmission Date: 20080703
  Serious: No
  Sender: FDA-Public Use
  Company Number: US-ABBOTT-06P-163-0333303-00

PATIENT
  Sex: Female
  Weight: 85.806 kg

DRUGS (1)
  1. HUMIRA [Suspect]
     Indication: RHEUMATOID ARTHRITIS
     Route: 058
     Dates: start: 20060409

REACTIONS (3)
  - BLEEDING TIME PROLONGED [None]
  - EPISTAXIS [None]
  - SKIN LACERATION [None]
